FAERS Safety Report 21481769 (Version 3)
Quarter: 2022Q4

REPORT INFORMATION
  Report Type: Report from Study
  Country: CA (occurrence: CA)
  Receive Date: 20221020
  Receipt Date: 20221115
  Transmission Date: 20230113
  Serious: Yes (Other)
  Sender: FDA-Public Use
  Company Number: CA-TAKEDA-CA202009368

PATIENT
  Age: 12 Year
  Sex: Male
  Weight: 44 kg

DRUGS (17)
  1. IDURSULFASE [Suspect]
     Active Substance: IDURSULFASE
     Indication: Mucopolysaccharidosis II
     Dosage: UNK
     Route: 050
  2. IDURSULFASE [Suspect]
     Active Substance: IDURSULFASE
     Dosage: 24 MILLIGRAM, 1/WEEK
     Route: 050
  3. IDURSULFASE [Suspect]
     Active Substance: IDURSULFASE
     Dosage: 19.5 MILLIGRAM
     Route: 050
  4. IDURSULFASE [Suspect]
     Active Substance: IDURSULFASE
     Dosage: 24 MILLIGRAM, 1/WEEK
     Route: 050
     Dates: start: 20130317
  5. IDURSULFASE [Suspect]
     Active Substance: IDURSULFASE
     Dosage: 22 MILLIGRAM, 1/WEEK
     Route: 050
     Dates: start: 20130717
  6. IDURSULFASE [Suspect]
     Active Substance: IDURSULFASE
     Dosage: 18 MILLIGRAM, 1/WEEK
     Route: 050
     Dates: start: 20130717
  7. IDURSULFASE [Suspect]
     Active Substance: IDURSULFASE
     Dosage: 20.7 MILLIGRAM, 1/WEEK
     Route: 050
     Dates: start: 20130717
  8. IDURSULFASE [Suspect]
     Active Substance: IDURSULFASE
     Dosage: 4 DOSAGE FORM, 1/WEEK
     Route: 050
     Dates: start: 20130717
  9. IDURSULFASE [Suspect]
     Active Substance: IDURSULFASE
     Dosage: 21.25 MILLIGRAM, 1/WEEK
     Route: 050
     Dates: start: 20130717
  10. IDURSULFASE [Suspect]
     Active Substance: IDURSULFASE
     Dosage: 4 DOSAGE FORM, 1/WEEK
     Route: 050
     Dates: start: 20130717
  11. IDURSULFASE [Suspect]
     Active Substance: IDURSULFASE
     Dosage: 22 MILLIGRAM, 1/WEEK
     Route: 050
     Dates: start: 20130717
  12. IDURSULFASE [Suspect]
     Active Substance: IDURSULFASE
     Dosage: 4 DOSAGE FORM, 1/WEEK
     Route: 050
     Dates: start: 20130717
  13. IDURSULFASE [Suspect]
     Active Substance: IDURSULFASE
     Dosage: 4 DOSAGE FORM, 1/WEEK
     Route: 050
     Dates: start: 20130717
  14. IDURSULFASE [Suspect]
     Active Substance: IDURSULFASE
     Dosage: 4 DOSAGE FORM, 1/WEEK
     Route: 050
     Dates: start: 20130717
  15. RAMIPRIL [Concomitant]
     Active Substance: RAMIPRIL
     Indication: Cardiac disorder
     Dosage: 7.5 MILLIGRAM, QD
     Route: 048
  16. VENTOLIN [Concomitant]
     Active Substance: ALBUTEROL SULFATE
     Indication: Product used for unknown indication
     Dosage: UNK
     Route: 050
  17. CONCERTA [Concomitant]
     Active Substance: METHYLPHENIDATE HYDROCHLORIDE
     Indication: Attention deficit hyperactivity disorder
     Dosage: 54 MILLIGRAM, QD
     Route: 048

REACTIONS (21)
  - Surgery [Recovering/Resolving]
  - Catheter site haemorrhage [Recovered/Resolved]
  - Catheter site swelling [Recovered/Resolved]
  - Emotional distress [Not Recovered/Not Resolved]
  - Catheter site pain [Recovered/Resolved]
  - Nervousness [Recovered/Resolved]
  - Respiratory rate increased [Unknown]
  - Blood pressure increased [Recovered/Resolved]
  - Dizziness [Unknown]
  - Infusion related reaction [Recovered/Resolved]
  - Vomiting [Recovered/Resolved]
  - Headache [Recovered/Resolved]
  - Blood pressure decreased [Recovered/Resolved]
  - Weight increased [Unknown]
  - Therapy change [Unknown]
  - Device issue [Not Recovered/Not Resolved]
  - Product dose omission issue [Unknown]
  - Inappropriate schedule of product administration [Not Recovered/Not Resolved]
  - Pyrexia [Not Recovered/Not Resolved]
  - Nasopharyngitis [Not Recovered/Not Resolved]
  - Cough [Not Recovered/Not Resolved]

NARRATIVE: CASE EVENT DATE: 20200129
